FAERS Safety Report 23158522 (Version 1)
Quarter: 2023Q4

REPORT INFORMATION
  Report Type: Spontaneous
  Country: NL (occurrence: NL)
  Receive Date: 20231108
  Receipt Date: 20231108
  Transmission Date: 20240109
  Serious: Yes (Hospitalization, Other)
  Sender: FDA-Public Use
  Company Number: None

PATIENT
  Age: 86 Year
  Sex: Male
  Weight: 90 kg

DRUGS (12)
  1. LEVOFLOXACIN [Suspect]
     Active Substance: LEVOFLOXACIN
     Indication: Intervertebral discitis
     Dosage: 250 MG, 2 TIMES PER DAY, 2X PER DAG 1 STUK
     Route: 065
     Dates: start: 20230922, end: 20231006
  2. OXYCONTIN [Concomitant]
     Active Substance: OXYCODONE HYDROCHLORIDE
     Indication: Product used for unknown indication
     Dosage: UNKTABLET MET GEREGULEERDE AFGIFTE, 5 MG (MILLIGRAM)
     Route: 065
  3. AMLODIPINE [Concomitant]
     Active Substance: AMLODIPINE BESYLATE
     Indication: Cardiac failure
     Dosage: TABLET, 5 MG (MILLIGRAM)
     Route: 065
  4. OXYCODONE HYDROCHLORIDE [Concomitant]
     Active Substance: OXYCODONE HYDROCHLORIDE
     Indication: Product used for unknown indication
     Dosage: TABLET MET GEREGULEERDE AFGIFTE, 5 MG (MILLIGRAM)
  5. FOLIC ACID [Concomitant]
     Active Substance: FOLIC ACID
     Indication: Product used for unknown indication
     Dosage: TABLET, 5 MG (MILLIGRAM)
     Route: 065
  6. DUTASTERIDE\TAMSULOSIN [Concomitant]
     Active Substance: DUTASTERIDE\TAMSULOSIN
     Indication: Product used for unknown indication
     Dosage: CAPSULE, 0,5/0,4 MG (MILLIGRAM)
  7. XARELTO [Concomitant]
     Active Substance: RIVAROXABAN
     Indication: Mitral valve replacement
     Dosage: TABLET, 15 MG (MILLIGRAM)
     Route: 065
  8. MOVICOLON [Concomitant]
     Active Substance: POLYETHYLENE GLYCOL 3350\POTASSIUM CHLORIDE\SODIUM BICARBONATE\SODIUM CHLORIDE
     Indication: Product used for unknown indication
     Dosage: POEDER VOOR DRANK
     Route: 065
  9. LOSARTAN POTASSIUM [Concomitant]
     Active Substance: LOSARTAN POTASSIUM
     Indication: Cardiac failure
     Dosage: FILMOMHULDE TABLET, 100 MG (MILLIGRAM)
     Route: 065
  10. METOPROLOL SUCCINATE [Concomitant]
     Active Substance: METOPROLOL SUCCINATE
     Indication: Product used for unknown indication
     Dosage: TABLET MET GEREGULEERDE AFGIFTE, 50 MG (MILLIGRAM)
     Route: 065
  11. MOMETASONE FUROATE [Concomitant]
     Active Substance: MOMETASONE FUROATE
     Indication: Product used for unknown indication
     Dosage: CREME, 1 MG/G (MILLIGRAM PER GRAM)
     Route: 065
  12. ACETAMINOPHEN [Concomitant]
     Active Substance: ACETAMINOPHEN
     Indication: Product used for unknown indication
     Dosage: TABLET, 500 MG (MILLIGRAM)
     Route: 065

REACTIONS (1)
  - Thrombotic microangiopathy [Recovering/Resolving]
